FAERS Safety Report 10550073 (Version 2)
Quarter: 2014Q4

REPORT INFORMATION
  Report Type: Spontaneous
  Country: US (occurrence: US)
  Receive Date: 20141028
  Receipt Date: 20141028
  Transmission Date: 20150529
  Serious: Yes (Hospitalization)
  Sender: FDA-Public Use
  Company Number: US-LUNDBECK-DKLU1085167

PATIENT
  Age: 1 Year
  Sex: Male

DRUGS (6)
  1. SABRIL [Suspect]
     Active Substance: VIGABATRIN
     Indication: INFANTILE SPASMS
     Dates: start: 20110822
  2. SABRIL [Suspect]
     Active Substance: VIGABATRIN
     Dates: start: 2012
  3. SABRIL [Suspect]
     Active Substance: VIGABATRIN
     Dates: start: 201202
  4. TOPAMAX [Suspect]
     Active Substance: TOPIRAMATE
     Indication: INFANTILE SPASMS
  5. ZONEGRAN [Concomitant]
     Active Substance: ZONISAMIDE
     Indication: PRODUCT USED FOR UNKNOWN INDICATION
  6. SABRIL [Suspect]
     Active Substance: VIGABATRIN

REACTIONS (1)
  - Hyperkinesia [Unknown]

NARRATIVE: CASE EVENT DATE: 201209
